FAERS Safety Report 8002269-3 (Version None)
Quarter: 2011Q4

REPORT INFORMATION
  Report Type: 
  Country: None (occurrence: None)
  Receive Date: 20111222
  Receipt Date: 20110208
  Transmission Date: 20120403
  Serious: No
  Sender: FDA-Public Use
  Company Number: US-GLAXOSMITHKLINE-A0912476A

PATIENT
  Age: 57 Year
  Sex: Female

DRUGS (2)
  1. COMMIT [Suspect]
     Indication: EX-TOBACCO USER
     Dates: start: 20110129, end: 20110205
  2. ANTIHYPERTENSIVE [Concomitant]

REACTIONS (14)
  - DRUG INEFFECTIVE [None]
  - NAUSEA [None]
  - PRURITUS [None]
  - ERYTHEMA [None]
  - NIGHTMARE [None]
  - VOMITING [None]
  - URTICARIA [None]
  - INSOMNIA [None]
  - RASH [None]
  - RASH GENERALISED [None]
  - DERMATITIS [None]
  - DRUG ADMINISTRATION ERROR [None]
  - PRURITUS GENERALISED [None]
  - SWELLING [None]
